FAERS Safety Report 4304618-6 (Version None)
Quarter: 2004Q1

REPORT INFORMATION
  Report Type: 
  Country: None (occurrence: None)
  Receive Date: 20040226
  Receipt Date: 20031028
  Transmission Date: 20041129
  Serious: No
  Sender: FDA-Public Use
  Company Number: US-GLAXOSMITHKLINE-A0432151A

PATIENT
  Age: 57 Year
  Sex: Male
  Weight: 84.1 kg

DRUGS (5)
  1. WELLBUTRIN [Suspect]
     Indication: BIPOLAR DISORDER
     Dosage: 150MG PER DAY
     Route: 048
     Dates: start: 20031001, end: 20031027
  2. VENTOLIN MDI [Concomitant]
  3. SYNTHROID [Concomitant]
  4. TRAZODONE HCL [Concomitant]
  5. DEPAKOTE [Concomitant]

REACTIONS (3)
  - DYSPNOEA [None]
  - ENERGY INCREASED [None]
  - HEART RATE INCREASED [None]
